FAERS Safety Report 7615657-1 (Version None)
Quarter: 2011Q3

REPORT INFORMATION
  Report Type: 
  Country: None (occurrence: None)
  Receive Date: 20110715
  Receipt Date: 20110715
  Transmission Date: 20111222
  Serious: Yes (Hospitalization)
  Sender: FDA-Public Use
  Company Number: None

PATIENT
  Age: 44 Year
  Sex: Male
  Weight: 71.2147 kg

DRUGS (15)
  1. MOUTHWASH [Concomitant]
  2. MUCOMUST [Concomitant]
  3. ATIVAN [Concomitant]
  4. ACETYLCYSTEINE [Concomitant]
  5. CARBOPLATIN [Suspect]
     Indication: HEAD AND NECK CANCER
     Dosage: 1.5 AUC; IV; QWK
     Route: 042
     Dates: start: 20110524, end: 20110705
  6. LIDOCAINE VISCOUS [Concomitant]
  7. ZYPREXA [Concomitant]
  8. DECADRON [Concomitant]
  9. OMEPRAZOLE [Concomitant]
  10. ROXICET [Concomitant]
  11. GUAIFENESIN [Concomitant]
  12. ABRAXANE [Suspect]
     Indication: HEAD AND NECK CANCER
     Dosage: 50MG/M2; IV; QWK
     Route: 042
     Dates: start: 20110524, end: 20110705
  13. METHADON AMIDONE HCL TAB [Concomitant]
  14. GUAIFENESIN [Concomitant]
  15. ZOFRAN [Concomitant]

REACTIONS (5)
  - HYPOPHAGIA [None]
  - MUCOSAL INFLAMMATION [None]
  - SECRETION DISCHARGE [None]
  - NAUSEA [None]
  - VOMITING [None]
